FAERS Safety Report 16013980 (Version 5)
Quarter: 2019Q2

REPORT INFORMATION
  Report Type: Report from Study
  Country: US (occurrence: US)
  Receive Date: 20190227
  Receipt Date: 20190514
  Transmission Date: 20190711
  Serious: Yes (Hospitalization, Other)
  Sender: FDA-Public Use
  Company Number: US-BRISTOL-MYERS SQUIBB COMPANY-BMS-2019-018234

PATIENT
  Age: 81 Year
  Sex: Female
  Weight: 61.24 kg

DRUGS (5)
  1. APIXABAN [Suspect]
     Active Substance: APIXABAN
     Indication: CEREBROVASCULAR ACCIDENT PROPHYLAXIS
     Dosage: 5 MILLIGRAM, BID
     Route: 048
     Dates: start: 20180908, end: 201904
  2. APIXABAN [Suspect]
     Active Substance: APIXABAN
     Indication: DEEP VEIN THROMBOSIS
     Dosage: 2.5 MILLIGRAM, BID
     Route: 048
     Dates: start: 20190412
  3. COREG [Concomitant]
     Active Substance: CARVEDILOL
     Indication: PRODUCT USED FOR UNKNOWN INDICATION
     Dosage: UNK
     Route: 065
  4. APIXABAN [Suspect]
     Active Substance: APIXABAN
     Indication: PRODUCT USED FOR UNKNOWN INDICATION
     Dosage: 2.5 MILLIGRAM, QD
     Route: 048
     Dates: end: 201904
  5. BABY ASPIRIN [Suspect]
     Active Substance: ASPIRIN
     Indication: PRODUCT USED FOR UNKNOWN INDICATION
     Dosage: 81 MILLIGRAM
     Route: 065

REACTIONS (17)
  - Vomiting [Unknown]
  - Frequent bowel movements [Unknown]
  - Paraesthesia [Unknown]
  - Weight decreased [Unknown]
  - Prescribed overdose [Unknown]
  - Contusion [Unknown]
  - Speech disorder [Unknown]
  - Circumstance or information capable of leading to medication error [Unknown]
  - Burning sensation [Recovered/Resolved]
  - Loss of consciousness [Unknown]
  - Tremor [Recovering/Resolving]
  - Insomnia [Unknown]
  - Sensory disturbance [Recovered/Resolved]
  - Lip swelling [Unknown]
  - Hypoaesthesia [Unknown]
  - Ear disorder [Unknown]
  - Inappropriate schedule of product administration [Unknown]

NARRATIVE: CASE EVENT DATE: 20190422
